FAERS Safety Report 4852598-7 (Version None)
Quarter: 2005Q4

REPORT INFORMATION
  Report Type: 
  Country: None (occurrence: None)
  Receive Date: 20051213
  Receipt Date: 20051130
  Transmission Date: 20060501
  Serious: Yes (Other)
  Sender: FDA-Public Use
  Company Number: PHBS2005CZ17627

PATIENT
  Age: 15 Year
  Sex: Male

DRUGS (2)
  1. FORADIL [Suspect]
     Indication: ASTHMA
     Dosage: 24 UG/DAY
     Dates: start: 20051125, end: 20051125
  2. MIFLONID [Concomitant]
     Dates: start: 20051125

REACTIONS (3)
  - ABDOMINAL RIGIDITY [None]
  - DIZZINESS [None]
  - TREMOR [None]
